FAERS Safety Report 25824087 (Version 1)
Quarter: 2025Q3

REPORT INFORMATION
  Report Type: Spontaneous
  Country: US (occurrence: US)
  Receive Date: 20250919
  Receipt Date: 20250919
  Transmission Date: 20251021
  Serious: Yes (Death, Life-Threatening, Other)
  Sender: BLUEPRINT MEDICINES
  Company Number: US-Blueprint Medicines Corporation-2025-AER-01987

PATIENT
  Age: 38 Year
  Sex: Male

DRUGS (1)
  1. AYVAKIT [Suspect]
     Active Substance: AVAPRITINIB
     Indication: Glioblastoma
     Route: 065

REACTIONS (4)
  - Post procedural complication [Fatal]
  - Post procedural infection [Unknown]
  - Radiation necrosis [Unknown]
  - Off label use [Unknown]
